FAERS Safety Report 10254168 (Version 1)
Quarter: 2014Q2

REPORT INFORMATION
  Report Type: Spontaneous
  Country: IT (occurrence: IT)
  Receive Date: 20140624
  Receipt Date: 20140624
  Transmission Date: 20141212
  Serious: Yes (Other)
  Sender: FDA-Public Use
  Company Number: IT-ROCHE-1423029

PATIENT
  Age: 67 Year
  Sex: Male

DRUGS (4)
  1. MABTHERA [Suspect]
     Indication: B-CELL LYMPHOMA
     Route: 042
     Dates: start: 20131010, end: 20131104
  2. TACHIPIRINA [Concomitant]
  3. TRIMETON (ITALY) [Concomitant]
     Indication: PREMEDICATION
  4. ZANTAC [Concomitant]
     Indication: PREMEDICATION

REACTIONS (2)
  - Dyspnoea [Unknown]
  - Hypertensive crisis [Unknown]
